FAERS Safety Report 5858582-9 (Version None)
Quarter: 2008Q3

REPORT INFORMATION
  Report Type: 
  Country: None (occurrence: None)
  Receive Date: 20080826
  Receipt Date: 20080814
  Transmission Date: 20090109
  Serious: Yes (Other)
  Sender: FDA-Public Use
  Company Number: BR-PFIZER INC-2008070213

PATIENT
  Sex: Female
  Weight: 74 kg

DRUGS (1)
  1. DOSTINEX [Suspect]
     Indication: ADENOMA BENIGN
     Dosage: TEXT:0.5MG 1X/DAY EVERYDAY TDD:0.5MG
     Route: 048

REACTIONS (4)
  - EYE DISORDER [None]
  - HEADACHE [None]
  - NAUSEA [None]
  - VISUAL ACUITY REDUCED [None]
